FAERS Safety Report 5222298-2 (Version None)
Quarter: 2007Q1

REPORT INFORMATION
  Report Type: 
  Country: None (occurrence: None)
  Receive Date: 20070129
  Receipt Date: 20061025
  Transmission Date: 20070707
  Serious: No
  Sender: FDA-Public Use
  Company Number: US-GLAXOSMITHKLINE-A0624929A

PATIENT
  Age: 43 Year
  Sex: Male

DRUGS (3)
  1. MEPRON [Suspect]
     Indication: DRUG USE FOR UNKNOWN INDICATION
     Dosage: 1TSP TWICE PER DAY
     Route: 048
     Dates: start: 20061001, end: 20061001
  2. AZITHROMYCIN [Concomitant]
  3. ESTROGENS SOL/INJ [Concomitant]

REACTIONS (1)
  - RASH [None]
